FAERS Safety Report 23222253 (Version 2)
Quarter: 2024Q1

REPORT INFORMATION
  Report Type: Report from Study
  Country: US (occurrence: US)
  Receive Date: 20231123
  Receipt Date: 20240206
  Transmission Date: 20240409
  Serious: Yes (Other)
  Sender: FDA-Public Use
  Company Number: US-BRISTOL-MYERS SQUIBB COMPANY-2023-166180

PATIENT
  Age: 62 Year
  Sex: Male

DRUGS (1)
  1. POMALYST [Suspect]
     Active Substance: POMALIDOMIDE
     Indication: Plasma cell myeloma
     Dosage: FREQUENCY- 1 CAPSULE DAILY X 21 DAYS
     Route: 048

REACTIONS (4)
  - Immunodeficiency [Recovered/Resolved]
  - Influenza like illness [Recovered/Resolved]
  - Diarrhoea [Recovered/Resolved]
  - Renal failure [Unknown]

NARRATIVE: CASE EVENT DATE: 20231030
